FAERS Safety Report 21701059 (Version 1)
Quarter: 2022Q4

REPORT INFORMATION
  Report Type: Spontaneous
  Country: CN (occurrence: None)
  Receive Date: 20221208
  Receipt Date: 20221208
  Transmission Date: 20230113
  Serious: Yes (Life-Threatening, Hospitalization)
  Sender: FDA-Public Use
  Company Number: 2022A399608

PATIENT
  Age: 29084 Day
  Sex: Female
  Weight: 43 kg

DRUGS (1)
  1. OSIMERTINIB MESYLATE [Suspect]
     Active Substance: OSIMERTINIB MESYLATE
     Indication: Lung neoplasm malignant
     Route: 048
     Dates: start: 20220804, end: 20221129

REACTIONS (6)
  - Cardiac arrest [Recovering/Resolving]
  - Electrocardiogram Q wave abnormal [Recovering/Resolving]
  - Dyspnoea [Recovering/Resolving]
  - Musculoskeletal discomfort [Recovering/Resolving]
  - Depressed level of consciousness [Recovering/Resolving]
  - Chest pain [Recovering/Resolving]

NARRATIVE: CASE EVENT DATE: 20221129
